FAERS Safety Report 8511686-4 (Version None)
Quarter: 2012Q3

REPORT INFORMATION
  Report Type: 
  Country: None (occurrence: None)
  Receive Date: 20120716
  Receipt Date: 20120709
  Transmission Date: 20120928
  Serious: Yes (Death, Hospitalization, Other)
  Sender: FDA-Public Use
  Company Number: US-TEVA-347762USA

PATIENT
  Age: 6 Year
  Sex: Female

DRUGS (1)
  1. DOXORUBICIN HCL [Suspect]
     Indication: PRECURSOR B-LYMPHOBLASTIC LYMPHOMA
     Route: 065

REACTIONS (3)
  - ERYTHROLEUKAEMIA [None]
  - RESPIRATORY DISORDER [None]
  - CARDIAC DISORDER [None]
